FAERS Safety Report 6487017-0 (Version None)
Quarter: 2009Q4

REPORT INFORMATION
  Report Type: 
  Country: None (occurrence: None)
  Receive Date: 20091210
  Receipt Date: 20091124
  Transmission Date: 20100525
  Serious: No
  Sender: FDA-Public Use
  Company Number: B0609060A

PATIENT
  Age: 25 Year
  Sex: Female

DRUGS (3)
  1. RELENZA [Suspect]
     Indication: INFLUENZA
     Dosage: 10MG TWICE PER DAY
     Route: 055
     Dates: start: 20091120, end: 20091125
  2. CALONAL [Concomitant]
     Indication: UPPER RESPIRATORY TRACT INFLAMMATION
     Dosage: 300MG PER DAY
     Route: 048
     Dates: start: 20091120, end: 20091125
  3. UNKNOWN MEDICATION [Concomitant]
     Route: 048
     Dates: start: 20091120

REACTIONS (1)
  - DRUG EXPOSURE DURING PREGNANCY [None]
